FAERS Safety Report 23100521 (Version 1)
Quarter: 2023Q4

REPORT INFORMATION
  Report Type: Spontaneous
  Country: US (occurrence: None)
  Receive Date: 20231020
  Receipt Date: 20231020
  Transmission Date: 20240109
  Serious: Yes (Hospitalization)
  Sender: FDA-Public Use
  Company Number: None

PATIENT
  Age: 34 Year
  Sex: Male
  Weight: 61 kg

DRUGS (1)
  1. QUETIAPINE FUMARATE [Suspect]
     Active Substance: QUETIAPINE FUMARATE
     Dosage: FREQUENCY : TWICE A DAY;?
     Route: 048
     Dates: start: 20181012

REACTIONS (2)
  - Loss of consciousness [None]
  - Intentional overdose [None]

NARRATIVE: CASE EVENT DATE: 20230129
